FAERS Safety Report 22140584 (Version 1)
Quarter: 2023Q1

REPORT INFORMATION
  Report Type: Spontaneous
  Country: US (occurrence: None)
  Receive Date: 20230323
  Receipt Date: 20230323
  Transmission Date: 20230418
  Serious: Yes (Death)
  Sender: FDA-Public Use
  Company Number: None

PATIENT
  Age: 70 Year
  Sex: Female

DRUGS (15)
  1. PROLIA [Suspect]
     Active Substance: DENOSUMAB
     Indication: Osteoporosis
     Dosage: OTHER FREQUENCY : Q6MONTH;?
     Route: 058
     Dates: start: 20200416
  2. ATORVASTATIN [Concomitant]
  3. AZO CRANBERRY.MXD BRY [Concomitant]
  4. BETAMETHASONE DIP [Concomitant]
  5. BIOTIN [Concomitant]
  6. CALCIUM/MAGNESIUM/ZINC [Concomitant]
  7. CLOBET ASOL PROP [Concomitant]
  8. FISH OIL [Concomitant]
     Active Substance: FISH OIL
  9. GABAPENTIN [Concomitant]
     Active Substance: GABAPENTIN
  10. HYDROXYCHLOROQUINE [Concomitant]
     Active Substance: HYDROXYCHLOROQUINE
  11. METOPROLOL TARTRATE [Concomitant]
     Active Substance: METOPROLOL TARTRATE
  12. OMEPRAZOLE [Concomitant]
     Active Substance: OMEPRAZOLE
  13. POTASSIUM [Concomitant]
     Active Substance: POTASSIUM
  14. RESTASIS [Concomitant]
     Active Substance: CYCLOSPORINE
  15. SERTRALINE [Concomitant]
     Active Substance: SERTRALINE HYDROCHLORIDE

REACTIONS (1)
  - Death [None]
